FAERS Safety Report 5583517-6 (Version None)
Quarter: 2008Q1

REPORT INFORMATION
  Report Type: 
  Country: None (occurrence: None)
  Receive Date: 20080107
  Receipt Date: 20071212
  Transmission Date: 20080703
  Serious: No
  Sender: FDA-Public Use
  Company Number: US-BOEHRINGER INGELHEIM PHARMACEUTICALS, INC.-2007-BP-25135BP

PATIENT
  Sex: Female

DRUGS (9)
  1. SPIRIVA [Suspect]
     Indication: CHRONIC OBSTRUCTIVE PULMONARY DISEASE
  2. ADVAIR DISKUS 100/50 [Concomitant]
     Indication: DYSPNOEA
  3. COMBIVENT [Concomitant]
     Indication: DYSPNOEA
  4. PREDNISONE TAB [Concomitant]
  5. LASIX [Concomitant]
  6. NEXIUM [Concomitant]
  7. QUINAPRIL HCL [Concomitant]
  8. VITAMINS [Concomitant]
  9. SOME OTC'S [Concomitant]

REACTIONS (1)
  - COUGH [None]
